FAERS Safety Report 5710013-5 (Version None)
Quarter: 2008Q2

REPORT INFORMATION
  Report Type: 
  Country: None (occurrence: None)
  Receive Date: 20080418
  Receipt Date: 20080414
  Transmission Date: 20081010
  Serious: Yes (Other)
  Sender: FDA-Public Use
  Company Number: US-PFIZER INC-2007025630

PATIENT

DRUGS (2)
  1. CELEBREX [Suspect]
     Indication: PAIN
  2. CELEBREX [Suspect]
     Indication: OSTEOARTHRITIS

REACTIONS (2)
  - CARDIOVASCULAR DISORDER [None]
  - MYOCARDIAL INFARCTION [None]
